FAERS Safety Report 8965855 (Version 3)
Quarter: 2013Q1

REPORT INFORMATION
  Report Type: Spontaneous
  Country: FR (occurrence: FR)
  Receive Date: 20121217
  Receipt Date: 20130308
  Transmission Date: 20140127
  Serious: Yes (Hospitalization)
  Sender: FDA-Public Use
  Company Number: FR-GE HEALTHCARE MEDICAL DIAGNOSTICS-VISP-NO-1212S-0589

PATIENT
  Age: 61 Year
  Sex: Female
  Weight: 96 kg

DRUGS (5)
  1. VISIPAQUE [Suspect]
     Indication: LYMPHADENOPATHY
     Route: 042
     Dates: start: 20121206, end: 20121206
  2. VISIPAQUE [Suspect]
     Indication: DIAGNOSTIC PROCEDURE
  3. ALLOPURINOL [Concomitant]
  4. TEMERIT [Concomitant]
  5. PAROXETINE [Concomitant]

REACTIONS (1)
  - Hypersensitivity [Recovered/Resolved]
